FAERS Safety Report 19195030 (Version 1)
Quarter: 2021Q2

REPORT INFORMATION
  Report Type: Spontaneous
  Country: US (occurrence: US)
  Receive Date: 20210429
  Receipt Date: 20210429
  Transmission Date: 20210717
  Serious: No
  Sender: FDA-Public Use
  Company Number: US-PFIZER INC-2021359864

PATIENT
  Age: 56 Year
  Sex: Female
  Weight: 59.41 kg

DRUGS (1)
  1. IBRANCE [Suspect]
     Active Substance: PALBOCICLIB
     Indication: BREAST CANCER FEMALE
     Dosage: 125 MG, CYCLIC (1 DAILY FOR 21 DAYS)
     Route: 048

REACTIONS (7)
  - Pruritus [Recovering/Resolving]
  - Incorrect dose administered [Unknown]
  - Vertigo [Recovering/Resolving]
  - Product prescribing error [Unknown]
  - Cough [Recovering/Resolving]
  - Motion sickness [Recovering/Resolving]
  - Dizziness [Recovering/Resolving]
